FAERS Safety Report 8849404 (Version 1)
Quarter: 2012Q4

REPORT INFORMATION
  Report Type: 
  Country: CH (occurrence: CH)
  Receive Date: 20121017
  Receipt Date: 20121017
  Transmission Date: 20130627
  Serious: Yes (Hospitalization)
  Sender: FDA-Public Use
  Company Number: CH-ASTRAZENECA-2012SE77573

PATIENT
  Age: 60 Year
  Sex: Female

DRUGS (21)
  1. NEXIUM MUPS [Suspect]
     Indication: GASTRIC ULCER
     Route: 048
     Dates: start: 20120614, end: 20120615
  2. TAZOBAC [Suspect]
     Route: 048
     Dates: start: 20120614
  3. TAZOBAC [Suspect]
     Route: 048
     Dates: start: 20120616, end: 20120623
  4. SOLUMEDROL(METHYLPREDNISOLONE SODIUM SUCCINATE) INFUSION [Suspect]
     Indication: CHRONIC OBSTRUCTIVE PULMONARY DISEASE
     Dosage: 125 MG
     Route: 041
     Dates: start: 20120614, end: 20120614
  5. FENTANYL [Concomitant]
     Indication: GENERAL ANAESTHESIA
     Dosage: 75 UG
     Route: 040
     Dates: start: 20120614, end: 20120614
  6. TORASEMIDE [Concomitant]
     Route: 048
  7. SYMBICORT [Concomitant]
     Dosage: 400/12UG 1DF TWICE A DAY
     Route: 055
  8. SERETIDE [Concomitant]
  9. ETOMIDATE [Concomitant]
     Dosage: 10MG
     Route: 040
     Dates: start: 20120614, end: 20120614
  10. SUCCICHOLINE [Concomitant]
     Dosage: 80MG
     Route: 040
     Dates: start: 20120614, end: 20120614
  11. ROCURONIUM [Concomitant]
     Dosage: 40MG
     Route: 040
     Dates: start: 20120614, end: 20120614
  12. PHENYLEPHRINE [Concomitant]
     Dosage: 100UG
     Route: 040
     Dates: start: 20120614, end: 20120614
  13. NOREPINEPHRINE [Concomitant]
     Route: 041
     Dates: start: 20120614, end: 20120614
  14. PREDNISONE [Concomitant]
     Dates: start: 20120614, end: 20120616
  15. INSULINE [Concomitant]
     Route: 041
  16. DOBUTAMINE [Concomitant]
     Route: 041
  17. LASIX [Concomitant]
     Route: 042
     Dates: start: 20120615, end: 20120615
  18. HEPARINE [Concomitant]
     Dosage: 5000IU/24 HOURS
     Dates: start: 20120617, end: 20120618
  19. FONDAPARINUX [Concomitant]
     Route: 058
     Dates: start: 20120617
  20. ENALAPRIL [Concomitant]
     Dates: start: 20110617
  21. ACIDE FOLIQUE [Concomitant]
     Dates: start: 20120617

REACTIONS (3)
  - Chronic obstructive pulmonary disease [Unknown]
  - Pneumonia [Unknown]
  - Thrombocytopenia [Recovering/Resolving]
